FAERS Safety Report 5128000-7 (Version None)
Quarter: 2006Q4

REPORT INFORMATION
  Report Type: 
  Country: None (occurrence: None)
  Receive Date: 20061010
  Receipt Date: 20060926
  Transmission Date: 20070319
  Serious: Yes (Hospitalization)
  Sender: FDA-Public Use
  Company Number: GXKR2006GB05959

PATIENT
  Sex: Male

DRUGS (1)
  1. TEMAZEPAM [Suspect]

REACTIONS (2)
  - CEREBROVASCULAR ACCIDENT [None]
  - VOMITING [None]
